FAERS Safety Report 18203979 (Version 1)
Quarter: 2020Q3

REPORT INFORMATION
  Report Type: Spontaneous
  Country: FR (occurrence: FR)
  Receive Date: 20200827
  Receipt Date: 20200827
  Transmission Date: 20201103
  Serious: Yes (Other)
  Sender: FDA-Public Use
  Company Number: FR-SUN PHARMACEUTICAL INDUSTRIES LTD-2020RR-258868

PATIENT
  Age: 72 Year
  Sex: Female

DRUGS (3)
  1. TERALITHE [Concomitant]
     Active Substance: LITHIUM CARBONATE
     Indication: THYMUS DISORDER
     Dosage: 1 DOSAGE FORM, DAILY
     Route: 048
     Dates: start: 20200617
  2. RISPERIDONE. [Suspect]
     Active Substance: RISPERIDONE
     Indication: NERVOUS SYSTEM DISORDER
     Dosage: 2 MILLIGRAM, DAILY
     Route: 048
     Dates: start: 20200612, end: 20200707
  3. SERESTA 20 MG, COMPRIME [Concomitant]
     Active Substance: OXAZEPAM
     Indication: ANXIETY
     Dosage: 1 DOSAGE FORM, DAILY
     Route: 048
     Dates: start: 20200612

REACTIONS (3)
  - Lacrimation increased [Recovered/Resolved]
  - Ocular hypertension [Recovering/Resolving]
  - Eye pain [Recovered/Resolved]

NARRATIVE: CASE EVENT DATE: 20200623
